FAERS Safety Report 6480005-X (Version None)
Quarter: 2009Q4

REPORT INFORMATION
  Report Type: 
  Country: None (occurrence: None)
  Receive Date: 20091208
  Receipt Date: 20091110
  Transmission Date: 20100525
  Serious: Yes (Other)
  Sender: FDA-Public Use
  Company Number: US-SANOFI-AVENTIS-A03200900507

PATIENT
  Age: 55 Year
  Sex: Male

DRUGS (2)
  1. AMBIEN [Suspect]
     Dosage: UNIT DOSE: 10 MG
     Route: 048
     Dates: start: 20061101, end: 20070101
  2. AMBIEN [Suspect]
     Dosage: UNIT DOSE: 10 MG
     Route: 048
     Dates: start: 20061101, end: 20070101

REACTIONS (1)
  - MYOCARDIAL INFARCTION [None]
